FAERS Safety Report 20438861 (Version 1)
Quarter: 2022Q1

REPORT INFORMATION
  Report Type: Spontaneous
  Country: US (occurrence: None)
  Receive Date: 20220204
  Receipt Date: 20220204
  Transmission Date: 20220424
  Serious: Yes (Other)
  Sender: FDA-Public Use
  Company Number: None

PATIENT
  Sex: Male

DRUGS (2)
  1. ZYLOPRIM [Suspect]
     Active Substance: ALLOPURINOL
  2. ZYLOPRIM [Suspect]
     Active Substance: ALLOPURINOL

REACTIONS (2)
  - Eczema [None]
  - Hypersensitivity [None]
